FAERS Safety Report 6069333-X (Version None)
Quarter: 2009Q1

REPORT INFORMATION
  Report Type: 
  Country: None (occurrence: None)
  Receive Date: 20090206
  Receipt Date: 20090130
  Transmission Date: 20090719
  Serious: Yes (Other)
  Sender: FDA-Public Use
  Company Number: US-PFIZER INC-2008040285

PATIENT
  Sex: Female
  Weight: 65.306 kg

DRUGS (12)
  1. LYRICA [Suspect]
     Indication: EPILEPSY
     Dosage: UNK
     Route: 048
     Dates: start: 20080331
  2. LYRICA [Suspect]
     Indication: FIBROMYALGIA
  3. LAMICTAL [Concomitant]
     Route: 048
  4. KLONOPIN [Concomitant]
     Route: 048
  5. CARAFATE [Concomitant]
  6. PROTONIX [Concomitant]
  7. TUMS [Concomitant]
  8. FOLIC ACID [Concomitant]
  9. MULTI-VITAMINS [Concomitant]
  10. ALL OTHER THERAPEUTIC PRODUCTS [Concomitant]
     Dosage: UNK
  11. VITAMIN B-12 [Concomitant]
     Dosage: UNK
  12. VITAMIN B COMPLEX CAP [Concomitant]
     Dosage: UNK

REACTIONS (11)
  - ACNE [None]
  - CONVULSION [None]
  - DIZZINESS [None]
  - DRUG INEFFECTIVE [None]
  - INCREASED APPETITE [None]
  - PRURITUS [None]
  - RASH [None]
  - RASH MACULAR [None]
  - TEMPERATURE INTOLERANCE [None]
  - VENTRICULAR EXTRASYSTOLES [None]
  - WEIGHT INCREASED [None]
